FAERS Safety Report 7591079-7 (Version None)
Quarter: 2011Q3

REPORT INFORMATION
  Report Type: 
  Country: None (occurrence: None)
  Receive Date: 20110705
  Receipt Date: 20110701
  Transmission Date: 20111222
  Serious: Yes (Life-Threatening)
  Sender: FDA-Public Use
  Company Number: PHHY2011GB58424

PATIENT
  Age: 85 Year
  Sex: Female
  Weight: 49 kg

DRUGS (5)
  1. SYMBICORT [Concomitant]
     Indication: ASTHMA
     Dosage: 2 DF, UNK
     Dates: start: 20080101
  2. SPIRIVA [Concomitant]
     Indication: ASTHMA
     Dosage: 1 DF, QD
     Dates: start: 20080101
  3. OMEPRAZOLE [Concomitant]
     Indication: GASTROOESOPHAGEAL REFLUX DISEASE
     Dosage: 40 MG, UNK
     Route: 048
     Dates: start: 20080101
  4. ALENDRONIC ACID [Suspect]
     Indication: OSTEOPOROSIS
     Dosage: 70 MG, UNK
     Route: 048
     Dates: start: 20080101, end: 20110606
  5. METOCLOPRAMIDE [Concomitant]
     Indication: DYSPEPSIA
     Dosage: 10 MG, UNK
     Route: 048
     Dates: start: 20100101

REACTIONS (1)
  - TRACHEO-OESOPHAGEAL FISTULA [None]
